FAERS Safety Report 6085579-9 (Version None)
Quarter: 2009Q1

REPORT INFORMATION
  Report Type: 
  Country: None (occurrence: None)
  Receive Date: 20090220
  Receipt Date: 20090212
  Transmission Date: 20090719
  Serious: Yes (Hospitalization, Other)
  Sender: FDA-Public Use
  Company Number: BR-ABBOTT-08P-020-0434974-00

PATIENT
  Sex: Female
  Weight: 60 kg

DRUGS (22)
  1. HUMIRA [Suspect]
     Indication: INTESTINAL FISTULA
     Route: 058
     Dates: start: 20071101
  2. HUMIRA [Suspect]
     Indication: CROHN'S DISEASE
     Route: 058
  3. HUMIRA [Suspect]
     Route: 058
     Dates: end: 20080129
  4. HUMIRA [Suspect]
     Route: 058
     Dates: start: 20080201, end: 20080313
  5. HUMIRA [Suspect]
     Dates: end: 20080701
  6. HUMIRA [Suspect]
     Dates: end: 20080901
  7. WARFARIN SODIUM [Concomitant]
     Indication: DEEP VEIN THROMBOSIS
  8. WARFARIN SODIUM [Concomitant]
     Indication: ANTICOAGULANT THERAPY
  9. PREDNISONE TAB [Concomitant]
     Indication: CROHN'S DISEASE
     Route: 048
  10. PREDNISONE TAB [Concomitant]
     Route: 048
  11. PREDNISONE TAB [Concomitant]
  12. PREDNISONE TAB [Concomitant]
  13. METRONIDASOLE [Concomitant]
     Indication: DRUG USE FOR UNKNOWN INDICATION
  14. PANTOPRAZOLE [Concomitant]
     Indication: DRUG USE FOR UNKNOWN INDICATION
  15. AZATHIOPRINE [Concomitant]
     Indication: IMMUNOSUPPRESSANT DRUG THERAPY
     Route: 048
     Dates: start: 20060101
  16. AZATHIOPRINE [Concomitant]
     Indication: CROHN'S DISEASE
     Dates: start: 20081001
  17. MESALAZINE [Concomitant]
     Indication: DRUG USE FOR UNKNOWN INDICATION
  18. CORTICOIDS [Concomitant]
     Indication: DRUG USE FOR UNKNOWN INDICATION
  19. CLOXAZOLAM [Concomitant]
     Indication: SEDATIVE THERAPY
  20. UNKNOWN MAGISTRAL FORMULA [Concomitant]
     Indication: HYPERTENSION
  21. ATENOLOL [Concomitant]
     Indication: HYPERTENSION
     Dosage: ONE-HALF TAB PER DAY
     Route: 048
  22. LOSARTAN [Concomitant]
     Indication: HYPERTENSION
     Route: 048

REACTIONS (27)
  - ABDOMINAL INFECTION [None]
  - ABDOMINAL WALL INFECTION [None]
  - ADVERSE EVENT [None]
  - ATAXIA [None]
  - BALANCE DISORDER [None]
  - BLINDNESS TRANSIENT [None]
  - COORDINATION ABNORMAL [None]
  - CROHN'S DISEASE [None]
  - DISORIENTATION [None]
  - DIZZINESS [None]
  - DRUG INEFFECTIVE [None]
  - DYSURIA [None]
  - ENTEROCUTANEOUS FISTULA [None]
  - FISTULA DISCHARGE [None]
  - FREQUENT BOWEL MOVEMENTS [None]
  - GAIT DISTURBANCE [None]
  - GASTROINTESTINAL DISORDER [None]
  - HEAD TITUBATION [None]
  - HYPOKINESIA [None]
  - NERVOUS SYSTEM DISORDER [None]
  - NYSTAGMUS [None]
  - PARAESTHESIA [None]
  - PNEUMONIA [None]
  - SPEECH DISORDER [None]
  - VERTIGO [None]
  - VISION BLURRED [None]
  - VISUAL IMPAIRMENT [None]
